FAERS Safety Report 4318950-3 (Version None)
Quarter: 2004Q1

REPORT INFORMATION
  Report Type: 
  Country: None (occurrence: None)
  Receive Date: 20040316
  Receipt Date: 20040303
  Transmission Date: 20041129
  Serious: No
  Sender: FDA-Public Use
  Company Number: 2004-113531-NL

PATIENT
  Age: 36 Year
  Sex: Male

DRUGS (7)
  1. MIRTAZAPINE [Suspect]
     Indication: DEPRESSION
     Dosage: 15 MG/30 MG/45 MG/60 MG/45 MG
     Route: 048
     Dates: start: 20040107, end: 20040107
  2. MIRTAZAPINE [Suspect]
     Indication: DEPRESSION
     Dosage: 15 MG/30 MG/45 MG/60 MG/45 MG
     Route: 048
     Dates: start: 20040108, end: 20040111
  3. MIRTAZAPINE [Suspect]
     Indication: DEPRESSION
     Dosage: 15 MG/30 MG/45 MG/60 MG/45 MG
     Route: 048
     Dates: start: 20040112, end: 20040115
  4. MIRTAZAPINE [Suspect]
     Indication: DEPRESSION
     Dosage: 15 MG/30 MG/45 MG/60 MG/45 MG
     Route: 048
     Dates: start: 20040116, end: 20040126
  5. MIRTAZAPINE [Suspect]
     Indication: DEPRESSION
     Dosage: 15 MG/30 MG/45 MG/60 MG/45 MG
     Route: 048
     Dates: start: 20040127
  6. RISPERIDONE [Suspect]
     Dosage: 2 MG/1 MG
     Route: 048
     Dates: start: 20040115, end: 20040120
  7. RISPERIDONE [Suspect]
     Dosage: 2 MG/1 MG
     Route: 048
     Dates: start: 20040121, end: 20040201

REACTIONS (3)
  - ALANINE AMINOTRANSFERASE INCREASED [None]
  - ASPARTATE AMINOTRANSFERASE INCREASED [None]
  - HEPATIC ENZYME INCREASED [None]
